FAERS Safety Report 24280499 (Version 2)
Quarter: 2024Q3

REPORT INFORMATION
  Report Type: Spontaneous
  Country: IT (occurrence: IT)
  Receive Date: 20240904
  Receipt Date: 20240917
  Transmission Date: 20241016
  Serious: Yes (Other)
  Sender: RANBAXY
  Company Number: IT-SUN PHARMACEUTICAL INDUSTRIES LTD-2024RR-465399

PATIENT
  Age: 6 Decade

DRUGS (13)
  1. GEMZAR [Suspect]
     Active Substance: GEMCITABINE HYDROCHLORIDE
     Indication: Metastatic neoplasm
     Dosage: 1000 MILLIGRAM/SQ. METER, ON DAYS 1 AND 8 EVERY 21 DAYS
     Route: 065
     Dates: start: 201708, end: 201711
  2. CARBOPLATIN [Suspect]
     Active Substance: CARBOPLATIN
     Indication: Metastatic neoplasm
     Dosage: UNK
     Route: 065
     Dates: start: 201411, end: 201501
  3. CARBOPLATIN [Suspect]
     Active Substance: CARBOPLATIN
     Dosage: UNK
     Route: 065
     Dates: start: 201708, end: 201711
  4. PREDNISONE [Suspect]
     Active Substance: PREDNISONE
     Indication: Thymoma
     Dosage: UNK
     Route: 065
  5. DOXORUBICIN HYDROCHLORIDE [Suspect]
     Active Substance: DOXORUBICIN HYDROCHLORIDE
     Indication: Metastatic neoplasm
     Dosage: 50 MILLIGRAM/SQ. METER ON DAY 1
     Route: 065
  6. TAXOL [Suspect]
     Active Substance: PACLITAXEL
     Indication: Metastatic neoplasm
     Dosage: 175 MILLIGRAM/SQ. METER
     Route: 065
     Dates: start: 201411, end: 201501
  7. MEDROL [Suspect]
     Active Substance: METHYLPREDNISOLONE
     Indication: Product used for unknown indication
     Dosage: UNK
     Route: 065
  8. CISPLATIN [Suspect]
     Active Substance: CISPLATIN
     Indication: Metastatic neoplasm
     Dosage: 50 MILLIGRAM/SQ. METER ON DAY 1
     Route: 065
  9. CISPLATIN [Suspect]
     Active Substance: CISPLATIN
     Dosage: 100 MILLIGRAM/SQ. METER ON DAY 1
     Route: 065
     Dates: start: 201511
  10. CYCLOPHOSPHAMIDE [Suspect]
     Active Substance: CYCLOPHOSPHAMIDE
     Indication: Metastatic neoplasm
     Dosage: 500 MILLIGRAM/SQ. METER
     Route: 065
  11. FLUOROURACIL [Suspect]
     Active Substance: FLUOROURACIL
     Indication: Metastatic neoplasm
     Dosage: 1000 MILLIGRAM/SQ. METER
     Route: 065
     Dates: start: 201511
  12. FLUOROURACIL [Suspect]
     Active Substance: FLUOROURACIL
     Dosage: UNK
     Route: 065
     Dates: start: 201505, end: 201703
  13. CETUXIMAB [Suspect]
     Active Substance: CETUXIMAB
     Indication: Thymoma

REACTIONS (8)
  - Anaphylactic reaction [Recovered/Resolved]
  - Disease progression [Not Recovered/Not Resolved]
  - Cardiac failure [Unknown]
  - Dyspnoea [Unknown]
  - Myocarditis [Recovering/Resolving]
  - Immunosuppression [Unknown]
  - Therapeutic product effect incomplete [Unknown]
  - Cytomegalovirus infection [Unknown]
